FAERS Safety Report 18428706 (Version 1)
Quarter: 2020Q4

REPORT INFORMATION
  Report Type: Spontaneous
  Country: US (occurrence: US)
  Receive Date: 20201026
  Receipt Date: 20201026
  Transmission Date: 20210114
  Serious: Yes (Death, Life-Threatening, Other)
  Sender: FDA-Public Use
  Company Number: US-PFIZER INC-2020410638

PATIENT
  Age: 66 Year
  Sex: Female

DRUGS (2)
  1. NOREPINEPHRINE BITARTRATE. [Suspect]
     Active Substance: NOREPINEPHRINE BITARTRATE
     Indication: HYPOTENSION
     Dosage: 10 UG, (TITRATED UP TO 10MCG/MIN)
  2. NOREPINEPHRINE BITARTRATE. [Suspect]
     Active Substance: NOREPINEPHRINE BITARTRATE
     Dosage: 70 UG, (RATE OF 70MCG/MIN)

REACTIONS (7)
  - Chest pain [Fatal]
  - Arteriospasm coronary [Fatal]
  - Overdose [Fatal]
  - Incorrect drug administration rate [Fatal]
  - Stress cardiomyopathy [Fatal]
  - Arrhythmia [Fatal]
  - Electrocardiogram ST segment elevation [Fatal]
